FAERS Safety Report 7716456-2 (Version None)
Quarter: 2011Q3

REPORT INFORMATION
  Report Type: 
  Country: None (occurrence: None)
  Receive Date: 20110829
  Receipt Date: 20110824
  Transmission Date: 20111222
  Serious: Yes (Death, Other)
  Sender: FDA-Public Use
  Company Number: PHHY2011CA75738

PATIENT
  Sex: Male

DRUGS (1)
  1. ZOMETA [Suspect]
     Indication: METASTASES TO BONE
     Dosage: 4 MG, EVERY 12 WEEKS
     Route: 042
     Dates: start: 20080210, end: 20110505

REACTIONS (3)
  - PLATELET DISORDER [None]
  - CEREBRAL HAEMORRHAGE [None]
  - METASTASES TO BONE MARROW [None]
